FAERS Safety Report 19859738 (Version 1)
Quarter: 2021Q3

REPORT INFORMATION
  Report Type: Spontaneous
  Country: US (occurrence: US)
  Receive Date: 20210920
  Receipt Date: 20210920
  Transmission Date: 20211014
  Serious: Yes (Disabling)
  Sender: FDA-Public Use
  Company Number: None

PATIENT
  Age: 68 Year
  Sex: Female
  Weight: 59.85 kg

DRUGS (3)
  1. RESTASIS [Concomitant]
     Active Substance: CYCLOSPORINE
  2. ESTRACE [Concomitant]
     Active Substance: ESTRADIOL
  3. MYRBETRIQ [Suspect]
     Active Substance: MIRABEGRON
     Indication: HYPERTONIC BLADDER
     Dosage: ?          QUANTITY:1 TABLET(S);?
     Route: 048
     Dates: start: 20200725, end: 20210916

REACTIONS (7)
  - Stomatitis [None]
  - Blood pressure increased [None]
  - Gingival pain [None]
  - Lip dry [None]
  - Swollen tongue [None]
  - Toothache [None]
  - Pain in extremity [None]

NARRATIVE: CASE EVENT DATE: 20210903
